FAERS Safety Report 15391838 (Version 1)
Quarter: 2018Q3

REPORT INFORMATION
  Report Type: Spontaneous
  Country: US (occurrence: US)
  Receive Date: 20180910
  Receipt Date: 20180910
  Transmission Date: 20181010
  Serious: No
  Sender: FDA-Public Use
  Company Number: None

PATIENT
  Age: 71 Year
  Sex: Male

DRUGS (3)
  1. LUCOVORIN [Concomitant]
  2. AVASTIN [Concomitant]
     Active Substance: BEVACIZUMAB
  3. FLUOROURACIL. [Suspect]
     Active Substance: FLUOROURACIL
     Dates: start: 20180828

REACTIONS (1)
  - Anaemia [None]

NARRATIVE: CASE EVENT DATE: 20180910
